FAERS Safety Report 12507390 (Version 1)
Quarter: 2016Q2

REPORT INFORMATION
  Report Type: Spontaneous
  Country: US (occurrence: US)
  Receive Date: 20160629
  Receipt Date: 20160629
  Transmission Date: 20160815
  Serious: Yes (Hospitalization)
  Sender: FDA-Public Use
  Company Number: US-ACCORD-041400

PATIENT
  Age: 55 Year
  Sex: Male

DRUGS (3)
  1. PREDNISONE. [Suspect]
     Active Substance: PREDNISONE
     Indication: IMMUNOSUPPRESSION
  2. TACROLIMUS. [Suspect]
     Active Substance: TACROLIMUS
     Indication: IMMUNOSUPPRESSION
  3. MYCOPHENOLIC ACID. [Suspect]
     Active Substance: MYCOPHENOLIC ACID
     Indication: IMMUNOSUPPRESSION
     Dosage: DECREASED TO 1000 MG TWO TIMES PER DAY AND AGAIN DECREASED AFTER 1 WEEK TO 750 MG TWO TIMES PER DAY

REACTIONS (3)
  - Polyomavirus-associated nephropathy [Recovering/Resolving]
  - Obliterative bronchiolitis [Unknown]
  - Condition aggravated [Unknown]
